FAERS Safety Report 8617709-6 (Version None)
Quarter: 2012Q3

REPORT INFORMATION
  Report Type: 
  Country: None (occurrence: None)
  Receive Date: 20120824
  Receipt Date: 20120104
  Transmission Date: 20120928
  Serious: No
  Sender: FDA-Public Use
  Company Number: US-ASTRAZENECA-2012SE00736

PATIENT
  Age: 65 Year
  Sex: Male

DRUGS (4)
  1. LEVETIRACETAM [Suspect]
     Route: 065
  2. AMLODIPINE BESYLATE [Suspect]
     Route: 065
  3. PRAVASTATIN [Suspect]
     Route: 065
  4. SYMBICORT [Suspect]
     Dosage: 160 MCG, FREQUENCY UNKNOWN
     Route: 055

REACTIONS (8)
  - FATIGUE [None]
  - BONE PAIN [None]
  - VISION BLURRED [None]
  - ASTHENIA [None]
  - CHILLS [None]
  - MUSCLE SPASMS [None]
  - SPEECH DISORDER [None]
  - CONDITION AGGRAVATED [None]
